FAERS Safety Report 23757975 (Version 1)
Quarter: 2024Q2

REPORT INFORMATION
  Report Type: Spontaneous
  Country: US (occurrence: None)
  Receive Date: 20240418
  Receipt Date: 20240418
  Transmission Date: 20240715
  Serious: Yes (Hospitalization)
  Sender: FDA-Public Use
  Company Number: None

PATIENT
  Age: 58 Year
  Sex: Male
  Weight: 58.5 kg

DRUGS (1)
  1. CYCLOPHOSPHAMIDE [Suspect]
     Active Substance: CYCLOPHOSPHAMIDE
     Indication: Plasma cell myeloma
     Dosage: OTHER FREQUENCY : ONCE WEEKLY;?
     Route: 048
     Dates: start: 20231017

REACTIONS (3)
  - Lethargy [None]
  - Hyperhidrosis [None]
  - Peripheral coldness [None]

NARRATIVE: CASE EVENT DATE: 20240218
